FAERS Safety Report 11905358 (Version 1)
Quarter: 2016Q1

REPORT INFORMATION
  Report Type: Report from Study
  Country: KR (occurrence: KR)
  Receive Date: 20160111
  Receipt Date: 20160111
  Transmission Date: 20160526
  Serious: Yes (Hospitalization)
  Sender: FDA-Public Use
  Company Number: KR-AMGEN-KORCT2016001747

PATIENT
  Age: 62 Year
  Sex: Female
  Weight: 55.5 kg

DRUGS (4)
  1. CINACALCET HCL - KHK [Suspect]
     Active Substance: CINACALCET HYDROCHLORIDE
     Indication: HYPERPARATHYROIDISM SECONDARY
     Dosage: 25 MG, QD
     Route: 048
     Dates: start: 20150922
  2. TRAZENTA [Concomitant]
     Active Substance: LINAGLIPTIN
     Dosage: 5 MG, UNK
     Route: 048
     Dates: start: 20150207
  3. INSULIN [Concomitant]
     Active Substance: INSULIN NOS
     Dosage: 24 UNIT, UNK
     Route: 065
     Dates: start: 20010220
  4. VASTINAN [Concomitant]
     Dosage: 70 MG, UNK
     Route: 048
     Dates: start: 20150915

REACTIONS (1)
  - Tendon rupture [Recovered/Resolved]

NARRATIVE: CASE EVENT DATE: 20151001
